FAERS Safety Report 22243759 (Version 1)
Quarter: 2023Q2

REPORT INFORMATION
  Report Type: Spontaneous
  Country: US (occurrence: None)
  Receive Date: 20230420
  Receipt Date: 20230420
  Transmission Date: 20230722
  Serious: No
  Sender: FDA-Public Use
  Company Number: None

PATIENT
  Age: 76 Year
  Sex: Male
  Weight: 83.6 kg

DRUGS (13)
  1. LENALIDOMIDE [Suspect]
     Active Substance: LENALIDOMIDE
     Indication: Plasma cell myeloma
     Dosage: OTHER FREQUENCY : 3W, 1W OFF;?
     Route: 048
  2. ALLOPURINOL [Concomitant]
  3. BISOPROLOL FUMARATE [Concomitant]
     Active Substance: BISOPROLOL FUMARATE
  4. DEXAMETHASONE [Concomitant]
  5. ENTRESTO [Concomitant]
     Active Substance: SACUBITRIL\VALSARTAN
  6. FINASTERIDE [Concomitant]
  7. FUROSEMIDE [Concomitant]
     Active Substance: FUROSEMIDE
  8. JARDIANCE [Concomitant]
     Active Substance: EMPAGLIFLOZIN
  9. MAGNESIUM OXIDE [Concomitant]
     Active Substance: MAGNESIUM OXIDE
  10. MIDODRINE [Concomitant]
  11. PANTOPRAZOLE SODIUM [Concomitant]
  12. POTASSIUM CHLORIDE [Concomitant]
  13. VALACYCLOVIR [Concomitant]
     Active Substance: VALACYCLOVIR HYDROCHLORIDE

REACTIONS (2)
  - Blood magnesium decreased [None]
  - Therapy interrupted [None]
